FAERS Safety Report 12916207 (Version 1)
Quarter: 2016Q4

REPORT INFORMATION
  Report Type: Spontaneous
  Country: US (occurrence: US)
  Receive Date: 20161105
  Receipt Date: 20161105
  Transmission Date: 20170207
  Serious: Yes (Other)
  Sender: FDA-Public Use
  Company Number: None

PATIENT
  Age: 31 Year
  Sex: Female
  Weight: 65.83 kg

DRUGS (1)
  1. MIRENA [Suspect]
     Active Substance: LEVONORGESTREL
     Indication: CONTRACEPTION
     Dosage: 1 1 DEVICE 5YEARS VAGINAL
     Route: 067
     Dates: start: 20091128, end: 20161105

REACTIONS (3)
  - Abortion spontaneous [None]
  - Ectopic pregnancy [None]
  - Device dislocation [None]

NARRATIVE: CASE EVENT DATE: 20130301
